FAERS Safety Report 11989528 (Version 4)
Quarter: 2016Q2

REPORT INFORMATION
  Report Type: Spontaneous
  Country: ES (occurrence: ES)
  Receive Date: 20160202
  Receipt Date: 20160419
  Transmission Date: 20160815
  Serious: Yes (Disabling, Other)
  Sender: FDA-Public Use
  Company Number: PHHY2016ES012187

PATIENT
  Age: 46 Year
  Sex: Female

DRUGS (1)
  1. GILENYA [Suspect]
     Active Substance: FINGOLIMOD HYDROCHLORIDE
     Indication: RELAPSING-REMITTING MULTIPLE SCLEROSIS
     Dosage: UNK
     Route: 065
     Dates: start: 20150814, end: 20160128

REACTIONS (12)
  - Weight decreased [Unknown]
  - Vulvovaginal mycotic infection [Recovered/Resolved]
  - Constipation [Recovering/Resolving]
  - Urticaria [Recovered/Resolved]
  - White blood cell count decreased [Unknown]
  - Asthenia [Recovering/Resolving]
  - Dysuria [Unknown]
  - Pollakiuria [Unknown]
  - Decreased appetite [Recovering/Resolving]
  - Rectal tenesmus [Unknown]
  - Urinary tract infection [Recovered/Resolved]
  - Lymphopenia [Recovering/Resolving]

NARRATIVE: CASE EVENT DATE: 20150831
